FAERS Safety Report 18349667 (Version 1)
Quarter: 2020Q4

REPORT INFORMATION
  Report Type: Report from Study
  Country: JP (occurrence: JP)
  Receive Date: 20201006
  Receipt Date: 20201006
  Transmission Date: 20210114
  Serious: Yes (Other)
  Sender: FDA-Public Use
  Company Number: JP-JNJFOC-A-CH2020-202505

PATIENT
  Age: 54 Year
  Sex: Female
  Weight: 73.1 kg

DRUGS (8)
  1. AZOSEMIDE [Concomitant]
     Active Substance: AZOSEMIDE
     Indication: RIGHT VENTRICULAR FAILURE
     Dosage: 30 MG, QD
     Route: 048
     Dates: start: 20180323
  2. EPOPROSTENOL. [Suspect]
     Active Substance: EPOPROSTENOL
     Indication: PULMONARY ARTERIAL HYPERTENSION
     Dosage: 51 NG/KG PER MIN
     Route: 042
     Dates: start: 20141007
  3. FEBURIC [Concomitant]
     Active Substance: FEBUXOSTAT
     Indication: HYPERURICAEMIA
     Dosage: 10 MG, QD
     Route: 048
  4. FAMOTIDINE. [Concomitant]
     Active Substance: FAMOTIDINE
     Indication: CHRONIC GASTRITIS
     Dosage: 10 MG, BID
     Route: 048
  5. OXYGEN. [Concomitant]
     Active Substance: OXYGEN
     Route: 055
  6. OPSUMIT [Suspect]
     Active Substance: MACITENTAN
     Indication: PULMONARY ARTERIAL HYPERTENSION
     Dosage: 10 MG, QD
     Route: 048
     Dates: start: 20180323
  7. REVATIO [Suspect]
     Active Substance: SILDENAFIL CITRATE
     Indication: PULMONARY ARTERIAL HYPERTENSION
     Dosage: 20 MG, TID
     Route: 048
     Dates: start: 20130904
  8. BIO-THREE [Concomitant]
     Active Substance: HERBALS
     Indication: ENTEROCOLITIS
     Dosage: 1 G, TID
     Route: 048

REACTIONS (12)
  - Hot flush [Recovering/Resolving]
  - Diarrhoea [Recovering/Resolving]
  - Dyslipidaemia [Recovered/Resolved]
  - Fall [Recovered/Resolved]
  - Compression fracture [Recovered/Resolved]
  - Erythema [Recovering/Resolving]
  - Pain in jaw [Recovering/Resolving]
  - Concomitant disease aggravated [Recovering/Resolving]
  - Headache [Recovering/Resolving]
  - Blood cholesterol increased [Recovered/Resolved]
  - Low density lipoprotein increased [Recovered/Resolved]
  - Device related infection [Recovering/Resolving]

NARRATIVE: CASE EVENT DATE: 20180406
